FAERS Safety Report 16125302 (Version 2)
Quarter: 2019Q3

REPORT INFORMATION
  Report Type: Other
  Country: US (occurrence: US)
  Receive Date: 20190327
  Receipt Date: 20190926
  Transmission Date: 20191004
  Serious: Yes (Other)
  Sender: FDA-Public Use
  Company Number: US-VERASTEM-2019-00012

PATIENT

DRUGS (1)
  1. COPIKTRA [Suspect]
     Active Substance: DUVELISIB
     Indication: CHOLANGIOCARCINOMA
     Dosage: 25 MG, BID
     Route: 048
     Dates: start: 20190116, end: 20190712

REACTIONS (6)
  - Headache [Unknown]
  - Colitis [Unknown]
  - Product use in unapproved indication [Not Recovered/Not Resolved]
  - Diarrhoea [Recovered/Resolved]
  - Rash generalised [Unknown]
  - Hepatic neoplasm [Not Recovered/Not Resolved]

NARRATIVE: CASE EVENT DATE: 2019
